FAERS Safety Report 12889802 (Version 2)
Quarter: 2017Q2

REPORT INFORMATION
  Report Type: Spontaneous
  Country: FR (occurrence: FR)
  Receive Date: 20161027
  Receipt Date: 20170522
  Transmission Date: 20170830
  Serious: Yes (Other)
  Sender: FDA-Public Use
  Company Number: FR-AMGEN-FRASP2016146717

PATIENT
  Age: 69 Year
  Sex: Female
  Weight: 47 kg

DRUGS (1)
  1. PROLIA [Suspect]
     Active Substance: DENOSUMAB
     Indication: OSTEOPOROSIS POSTMENOPAUSAL
     Dosage: 60 MG, Q6MO
     Route: 058
     Dates: start: 201604, end: 201610

REACTIONS (2)
  - Osteonecrosis of jaw [Recovering/Resolving]
  - Tooth disorder [Unknown]

NARRATIVE: CASE EVENT DATE: 201609
